FAERS Safety Report 18858456 (Version 1)
Quarter: 2021Q1

REPORT INFORMATION
  Report Type: Spontaneous
  Country: US (occurrence: US)
  Receive Date: 20210205
  Receipt Date: 20210205
  Transmission Date: 20210420
  Serious: Yes (Hospitalization, Other)
  Sender: FDA-Public Use
  Company Number: None

PATIENT
  Age: 30 Year
  Sex: Female

DRUGS (1)
  1. RITUXAN [Suspect]
     Active Substance: RITUXIMAB
     Indication: OPTIC NEURITIS
     Dosage: ?          OTHER ROUTE:IV?INFUSE 10000MGON DAY 1 AND DAY 15 IN NS 500 ML?

REACTIONS (3)
  - Paralysis [None]
  - Off label use [None]
  - Therapy interrupted [None]

NARRATIVE: CASE EVENT DATE: 20210110
